FAERS Safety Report 8388652-5 (Version None)
Quarter: 2012Q2

REPORT INFORMATION
  Report Type: 
  Country: None (occurrence: None)
  Receive Date: 20120525
  Receipt Date: 20120517
  Transmission Date: 20120825
  Serious: Yes (Hospitalization, Disabling, Other)
  Sender: FDA-Public Use
  Company Number: US-MERCK-1112USA00612

PATIENT
  Age: 56 Year
  Sex: Male

DRUGS (6)
  1. FOSAMAX [Suspect]
     Route: 048
     Dates: start: 20030501, end: 20051101
  2. FOSAMAX [Suspect]
     Indication: OSTEOPOROSIS
     Route: 048
     Dates: start: 19981201, end: 20030401
  3. FOSAMAX [Suspect]
     Indication: OSTEOPENIA
     Route: 048
     Dates: start: 19981201, end: 20030401
  4. FOSAMAX [Suspect]
     Route: 048
     Dates: start: 20051201, end: 20091201
  5. FOSAMAX [Suspect]
     Route: 048
     Dates: start: 20051201, end: 20091201
  6. FOSAMAX [Suspect]
     Route: 048
     Dates: start: 20030501, end: 20051101

REACTIONS (13)
  - STAPHYLOCOCCAL OSTEOMYELITIS [None]
  - GASTROOESOPHAGEAL REFLUX DISEASE [None]
  - LOW TURNOVER OSTEOPATHY [None]
  - DIABETES MELLITUS [None]
  - SPINAL DISORDER [None]
  - RIB FRACTURE [None]
  - TOOTH DISORDER [None]
  - FEMUR FRACTURE [None]
  - HAND FRACTURE [None]
  - OSTEOPOROSIS [None]
  - FOOT FRACTURE [None]
  - SPINAL COMPRESSION FRACTURE [None]
  - NEPHROLITHIASIS [None]
